FAERS Safety Report 21407592 (Version 1)
Quarter: 2022Q4

REPORT INFORMATION
  Report Type: Spontaneous
  Country: HU (occurrence: HU)
  Receive Date: 20221004
  Receipt Date: 20221004
  Transmission Date: 20230113
  Serious: Yes (Disabling)
  Sender: FDA-Public Use
  Company Number: HU-NALPROPION PHARMACEUTICALS INC.-HU-2022CUR023055

PATIENT
  Age: 65 Year
  Sex: Male
  Weight: 150 kg

DRUGS (36)
  1. BUPROPION HYDROCHLORIDE\NALTREXONE HYDROCHLORIDE [Suspect]
     Active Substance: BUPROPION HYDROCHLORIDE\NALTREXONE HYDROCHLORIDE
     Indication: Obesity
     Dosage: 1-0-0
     Route: 048
     Dates: start: 20220430, end: 20220506
  2. BUPROPION HYDROCHLORIDE\NALTREXONE HYDROCHLORIDE [Suspect]
     Active Substance: BUPROPION HYDROCHLORIDE\NALTREXONE HYDROCHLORIDE
     Dosage: 1-0-1
     Route: 048
     Dates: start: 20220507, end: 20220513
  3. BUPROPION HYDROCHLORIDE\NALTREXONE HYDROCHLORIDE [Suspect]
     Active Substance: BUPROPION HYDROCHLORIDE\NALTREXONE HYDROCHLORIDE
     Dosage: 2-0-1
     Route: 048
     Dates: start: 20220514, end: 20220520
  4. BUPROPION HYDROCHLORIDE\NALTREXONE HYDROCHLORIDE [Suspect]
     Active Substance: BUPROPION HYDROCHLORIDE\NALTREXONE HYDROCHLORIDE
     Dosage: 2-0-2
     Route: 048
     Dates: start: 20220521, end: 20220603
  5. BUPROPION HYDROCHLORIDE\NALTREXONE HYDROCHLORIDE [Suspect]
     Active Substance: BUPROPION HYDROCHLORIDE\NALTREXONE HYDROCHLORIDE
     Dosage: 1-0-0
     Route: 048
     Dates: start: 20220702, end: 20220729
  6. BUPROPION HYDROCHLORIDE\NALTREXONE HYDROCHLORIDE [Suspect]
     Active Substance: BUPROPION HYDROCHLORIDE\NALTREXONE HYDROCHLORIDE
     Dosage: 1-0-1
     Route: 048
     Dates: start: 20220730, end: 20220826
  7. BUPROPION HYDROCHLORIDE\NALTREXONE HYDROCHLORIDE [Suspect]
     Active Substance: BUPROPION HYDROCHLORIDE\NALTREXONE HYDROCHLORIDE
     Dosage: 2-0-1
     Route: 048
     Dates: start: 20220827, end: 20220909
  8. CHONDROITIN SULFATE SODIUM NOS [Concomitant]
     Active Substance: CHONDROITIN SULFATE SODIUM NOS
     Indication: Product used for unknown indication
     Dosage: 400 MG
  9. MAGNEROT [MAGNESIUM OROTATE] [Concomitant]
     Indication: Product used for unknown indication
     Dosage: UNK
  10. ALVESCO [Concomitant]
     Active Substance: CICLESONIDE
     Indication: Product used for unknown indication
     Dosage: 160 MICROGRAM
  11. DICLOFENAC DIETHYLAMINE [Concomitant]
     Active Substance: DICLOFENAC DIETHYLAMINE
     Indication: Product used for unknown indication
     Dosage: UNK
  12. D3-VITAMIN BERES [Concomitant]
     Indication: Product used for unknown indication
     Dosage: 1600 IU
  13. NEBIVOLOL [Concomitant]
     Active Substance: NEBIVOLOL
     Indication: Product used for unknown indication
     Dosage: 5 MG
  14. DIMOTEC [Concomitant]
     Indication: Product used for unknown indication
     Dosage: 1000 MG
  15. DROTAVERINE HYDROCHLORIDE [Concomitant]
     Active Substance: DROTAVERINE HYDROCHLORIDE
     Indication: Product used for unknown indication
     Dosage: AS NECESSARY
  16. ADIMET XR [Concomitant]
     Indication: Product used for unknown indication
     Dosage: 1000 MG
  17. TRULICITY [Concomitant]
     Active Substance: DULAGLUTIDE
     Indication: Product used for unknown indication
     Dosage: 1.5 MG
  18. FLUVASTATIN SODIUM [Concomitant]
     Active Substance: FLUVASTATIN SODIUM
     Indication: Product used for unknown indication
     Dosage: 80 MG
  19. INSULIN GLARGINE [Concomitant]
     Active Substance: INSULIN GLARGINE
     Indication: Product used for unknown indication
     Dosage: UNK
  20. AMLODIPINE BESYLATE\LISINOPRIL [Concomitant]
     Active Substance: AMLODIPINE BESYLATE\LISINOPRIL
     Indication: Product used for unknown indication
     Dosage: UNK
  21. AMLODIPINE BESYLATE [Concomitant]
     Active Substance: AMLODIPINE BESYLATE
     Indication: Product used for unknown indication
     Dosage: 5 MG
  22. REVICET [Concomitant]
     Indication: Product used for unknown indication
     Dosage: 10 MG
  23. LYRICA [Concomitant]
     Active Substance: PREGABALIN
     Indication: Product used for unknown indication
     Dosage: 150 MG
  24. ASPIRIN [Concomitant]
     Active Substance: ASPIRIN
     Indication: Product used for unknown indication
     Dosage: 100 MG
  25. RILMENIDINE TEVA [Concomitant]
     Indication: Product used for unknown indication
     Dosage: 1 MG
  26. PANANGIN FORTE [Concomitant]
     Indication: Product used for unknown indication
     Dosage: UNK
  27. HUMALOG [Concomitant]
     Active Substance: INSULIN LISPRO
     Indication: Product used for unknown indication
     Dosage: UNK
  28. BETAHISTIN-RATIOPHARM [Concomitant]
     Indication: Product used for unknown indication
     Dosage: 16 MG
  29. .ALPHA.-LIPOIC ACID [Concomitant]
     Active Substance: .ALPHA.-LIPOIC ACID
     Indication: Product used for unknown indication
     Dosage: 600 MG
     Route: 048
  30. METAMIZOLE SODIUM [Concomitant]
     Active Substance: METAMIZOLE SODIUM
     Indication: Product used for unknown indication
     Dosage: UNK
  31. ALFUZOSIN [Concomitant]
     Active Substance: ALFUZOSIN
     Indication: Product used for unknown indication
     Dosage: 10 MG
  32. ALLOPURINOL [Concomitant]
     Active Substance: ALLOPURINOL
     Indication: Product used for unknown indication
     Dosage: 300 MG
  33. FUROSEMIDE [Concomitant]
     Active Substance: FUROSEMIDE
     Indication: Product used for unknown indication
     Dosage: 40 MG
  34. MILGAMMA NEURO [Concomitant]
     Indication: Product used for unknown indication
     Dosage: UNK
  35. NARVA SR [Concomitant]
     Indication: Product used for unknown indication
     Dosage: 1.5 MG
  36. OLODATEROL HYDROCHLORIDE\TIOTROPIUM BROMIDE MONOHYDRATE [Concomitant]
     Active Substance: OLODATEROL HYDROCHLORIDE\TIOTROPIUM BROMIDE MONOHYDRATE
     Indication: Product used for unknown indication
     Dosage: UNK

REACTIONS (9)
  - Muscle twitching [Recovering/Resolving]
  - Headache [Recovering/Resolving]
  - Dyspnoea [Recovering/Resolving]
  - Somnolence [Recovering/Resolving]
  - Insomnia [Recovering/Resolving]
  - Hypertension [Recovering/Resolving]
  - Tinnitus [Recovering/Resolving]
  - Diarrhoea [Recovering/Resolving]
  - Dry throat [Recovering/Resolving]

NARRATIVE: CASE EVENT DATE: 20220101
